FAERS Safety Report 5773500-X (Version None)
Quarter: 2008Q2

REPORT INFORMATION
  Report Type: 
  Country: None (occurrence: None)
  Receive Date: 20080601
  Receipt Date: 20080111
  Transmission Date: 20081010
  Serious: No
  Sender: FDA-Public Use
  Company Number: US200707005591

PATIENT
  Age: 73 Year
  Sex: Female

DRUGS (3)
  1. BYETTA [Suspect]
     Indication: TYPE 2 DIABETES MELLITUS
     Dosage: 5 UG, 2/D, SUBCUTANEOUS ; 5 UG, EACH MORNING, SUBCUTANEOUS
     Route: 058
     Dates: start: 20070714, end: 20070727
  2. BYETTA [Suspect]
     Indication: TYPE 2 DIABETES MELLITUS
     Dosage: 5 UG, 2/D, SUBCUTANEOUS ; 5 UG, EACH MORNING, SUBCUTANEOUS
     Route: 058
     Dates: start: 20070727
  3. GLUCOTROL [Concomitant]

REACTIONS (6)
  - BLOOD GLUCOSE DECREASED [None]
  - FEELING ABNORMAL [None]
  - FEELING JITTERY [None]
  - HEADACHE [None]
  - HYPOGLYCAEMIA [None]
  - SOMNOLENCE [None]
